FAERS Safety Report 7622272-2 (Version None)
Quarter: 2011Q3

REPORT INFORMATION
  Report Type: 
  Country: None (occurrence: None)
  Receive Date: 20110720
  Receipt Date: 20110428
  Transmission Date: 20111222
  Serious: Yes (Other)
  Sender: FDA-Public Use
  Company Number: US-BAYER-2011-036810

PATIENT
  Sex: Female

DRUGS (7)
  1. CIPROFLOXACIN HCL [Suspect]
     Indication: PNEUMONIA
  2. CIPROFLOXACIN HCL [Suspect]
     Indication: ENTEROCOLITIS INFECTIOUS
     Dosage: UNK
     Route: 042
     Dates: end: 20110401
  3. CALAN [Concomitant]
  4. METOPROLOL TARTRATE [Concomitant]
  5. ALTACE [Concomitant]
  6. CIPROFLOXACIN HCL [Suspect]
     Indication: URINARY TRACT INFECTION
     Dosage: 500 MG, BID
     Route: 048
  7. XANAX [Concomitant]
     Indication: INSOMNIA

REACTIONS (3)
  - CARDIAC DISCOMFORT [None]
  - TENDON RUPTURE [None]
  - BLOOD PRESSURE INCREASED [None]
